FAERS Safety Report 5761695-3 (Version None)
Quarter: 2008Q2

REPORT INFORMATION
  Report Type: 
  Country: None (occurrence: None)
  Receive Date: 20080606
  Receipt Date: 20080523
  Transmission Date: 20081010
  Serious: Yes (Hospitalization, Other)
  Sender: FDA-Public Use
  Company Number: US-GENENTECH-251412

PATIENT
  Age: 44 Year
  Sex: Female

DRUGS (2)
  1. OMALIZUMAB [Suspect]
     Indication: ASTHMA
  2. CORTICOSTEROIDS (UNK INGREDIENTS) [Concomitant]
     Indication: ASTHMA

REACTIONS (1)
  - ANAPHYLACTIC REACTION [None]
